FAERS Safety Report 20427476 (Version 1)
Quarter: 2022Q1

REPORT INFORMATION
  Report Type: Report from Study
  Country: US (occurrence: US)
  Receive Date: 20220204
  Receipt Date: 20220204
  Transmission Date: 20220423
  Serious: No
  Sender: FDA-Public Use
  Company Number: US-EXELIXIS-CABO-21043880

PATIENT
  Age: 56 Year
  Sex: Female
  Weight: 61.224 kg

DRUGS (8)
  1. CABOMETYX [Suspect]
     Active Substance: CABOZANTINIB S-MALATE
     Indication: Renal cancer
     Dosage: 60 MG, QOD
     Route: 048
     Dates: start: 20201006
  2. CABOMETYX [Suspect]
     Active Substance: CABOZANTINIB S-MALATE
     Dosage: 60 MG, QOD
     Route: 048
  3. TETANUS TOXOIDS [Concomitant]
     Active Substance: TETANUS TOXOIDS
  4. IMODIUM A-D [Concomitant]
     Active Substance: LOPERAMIDE HYDROCHLORIDE
  5. Fluzone quadrivalent 2020 [Concomitant]
  6. SUTENT [Concomitant]
     Active Substance: SUNITINIB MALATE
  7. VITAMINS [Concomitant]
     Active Substance: VITAMINS
  8. FERROUS SULFATE [Concomitant]
     Active Substance: FERROUS SULFATE

REACTIONS (2)
  - Product dose omission issue [Unknown]
  - Inappropriate schedule of product administration [Unknown]

NARRATIVE: CASE EVENT DATE: 20201006
